FAERS Safety Report 19003968 (Version 2)
Quarter: 2021Q2

REPORT INFORMATION
  Report Type: Other
  Country: US (occurrence: US)
  Receive Date: 20210313
  Receipt Date: 20210504
  Transmission Date: 20210717
  Serious: Yes (Hospitalization, Other)
  Sender: FDA-Public Use
  Company Number: US-ROCHE-2567317

PATIENT
  Age: 77 Year
  Sex: Female

DRUGS (3)
  1. ESBRIET [Suspect]
     Active Substance: PIRFENIDONE
     Indication: INTERSTITIAL LUNG DISEASE
  2. MORPHINE [Suspect]
     Active Substance: MORPHINE
     Indication: PELVIC FRACTURE
     Route: 065
  3. ESBRIET [Suspect]
     Active Substance: PIRFENIDONE
     Indication: IDIOPATHIC PULMONARY FIBROSIS
     Dosage: TABLET 267 MG, 3 TABLET BY MOUTH 3 TIMES A DAY WITH MEAL
     Route: 048
     Dates: start: 2019

REACTIONS (8)
  - Fall [Unknown]
  - Rib fracture [Unknown]
  - Rash [Unknown]
  - Illness [Unknown]
  - Photosensitivity reaction [Unknown]
  - Fall [Unknown]
  - Neuropathy peripheral [Not Recovered/Not Resolved]
  - Pelvic fracture [Unknown]

NARRATIVE: CASE EVENT DATE: 2019
